FAERS Safety Report 4483801-3 (Version None)
Quarter: 2004Q4

REPORT INFORMATION
  Report Type: 
  Country: None (occurrence: None)
  Receive Date: 20041025
  Receipt Date: 20041012
  Transmission Date: 20050328
  Serious: Yes (Hospitalization)
  Sender: FDA-Public Use
  Company Number: FR-ABBOTT-04P-056-0277503-00

PATIENT
  Age: 32 Year
  Sex: Male
  Weight: 58 kg

DRUGS (7)
  1. KALETRA [Suspect]
     Indication: HIV INFECTION
     Route: 048
     Dates: start: 20020501
  2. NORVIR [Suspect]
     Indication: DRUG USE FOR UNKNOWN INDICATION
     Route: 048
  3. PREDNISONE [Suspect]
     Indication: DRUG USE FOR UNKNOWN INDICATION
     Route: 048
     Dates: start: 20011201, end: 20020701
  4. METHYLPREDNISONE [Suspect]
     Indication: DRUG USE FOR UNKNOWN INDICATION
     Route: 037
     Dates: start: 20011201, end: 20020701
  5. METHOTREXATE [Suspect]
     Indication: DRUG USE FOR UNKNOWN INDICATION
     Route: 037
     Dates: start: 20011201, end: 20020701
  6. STAVUDINE [Suspect]
     Indication: DRUG USE FOR UNKNOWN INDICATION
     Route: 048
     Dates: start: 20020501
  7. LAMIVUDINE [Concomitant]
     Indication: HIV INFECTION
     Dates: start: 20020501

REACTIONS (2)
  - HYPERTRIGLYCERIDAEMIA [None]
  - OSTEONECROSIS [None]
